FAERS Safety Report 6504160-8 (Version None)
Quarter: 2009Q4

REPORT INFORMATION
  Report Type: 
  Country: None (occurrence: None)
  Receive Date: 20091217
  Receipt Date: 20091207
  Transmission Date: 20100525
  Serious: Yes (Hospitalization)
  Sender: FDA-Public Use
  Company Number: FR-SANOFI-AVENTIS-2009SA007732

PATIENT
  Age: 62 Year

DRUGS (8)
  1. OXALIPLATIN [Suspect]
     Indication: COLON CANCER
     Route: 042
     Dates: start: 20061207, end: 20061207
  2. OXALIPLATIN [Suspect]
     Route: 042
     Dates: start: 20070221, end: 20070221
  3. CETUXIMAB [Suspect]
     Indication: COLON CANCER
     Route: 042
     Dates: start: 20061207, end: 20061207
  4. CETUXIMAB [Suspect]
     Route: 042
     Dates: start: 20070221, end: 20070221
  5. FLUOROURACIL [Suspect]
     Indication: COLON CANCER
     Route: 042
     Dates: start: 20061207, end: 20061207
  6. FLUOROURACIL [Suspect]
     Route: 042
     Dates: start: 20070221, end: 20070221
  7. FOLINIC ACID [Suspect]
     Indication: COLON CANCER
     Route: 042
     Dates: start: 20061207, end: 20061207
  8. FOLINIC ACID [Suspect]
     Route: 042
     Dates: start: 20070221, end: 20070221

REACTIONS (3)
  - BRONCHITIS [None]
  - MYOCARDIAL ISCHAEMIA [None]
  - NEUTROPENIA [None]
